FAERS Safety Report 13196809 (Version 1)
Quarter: 2017Q1

REPORT INFORMATION
  Report Type: Spontaneous
  Country: FR (occurrence: FR)
  Receive Date: 20170208
  Receipt Date: 20170208
  Transmission Date: 20170428
  Serious: Yes (Hospitalization, Other)
  Sender: FDA-Public Use
  Company Number: FR-GLAXOSMITHKLINE-FR2017GSK016117

PATIENT
  Age: 13 Year
  Sex: Female

DRUGS (2)
  1. LAMICTAL [Suspect]
     Active Substance: LAMOTRIGINE
     Dosage: UNK
     Route: 048
     Dates: start: 20161207
  2. LAMICTAL [Suspect]
     Active Substance: LAMOTRIGINE
     Indication: HEMIPLEGIC MIGRAINE
     Dosage: UNK
     Route: 048
     Dates: start: 20160126, end: 20161215

REACTIONS (3)
  - Hypertensive crisis [Not Recovered/Not Resolved]
  - Epistaxis [Recovered/Resolved]
  - Headache [Recovered/Resolved]

NARRATIVE: CASE EVENT DATE: 20161215
